FAERS Safety Report 20479535 (Version 2)
Quarter: 2022Q1

REPORT INFORMATION
  Report Type: Spontaneous
  Country: US (occurrence: US)
  Receive Date: 20220216
  Receipt Date: 20220228
  Transmission Date: 20220424
  Serious: No
  Sender: FDA-Public Use
  Company Number: US-TEVA-2022-US-2006243

PATIENT
  Age: 67 Year
  Sex: Female

DRUGS (1)
  1. IMATINIB MESYLATE [Suspect]
     Active Substance: IMATINIB MESYLATE
     Dosage: FOR 10 YEARS
     Route: 065

REACTIONS (2)
  - Throat irritation [Unknown]
  - Product physical issue [Unknown]

NARRATIVE: CASE EVENT DATE: 20211230
